FAERS Safety Report 9292594 (Version 1)
Quarter: 2013Q2

REPORT INFORMATION
  Report Type: Spontaneous
  Country: US (occurrence: None)
  Receive Date: 20130515
  Receipt Date: 20130515
  Transmission Date: 20140414
  Serious: No
  Sender: FDA-Public Use
  Company Number: None

PATIENT
  Age: 36 Year
  Sex: Female

DRUGS (2)
  1. PHENYTOIN [Suspect]
     Dates: start: 20120228, end: 20120304
  2. CIPROFLOXACIN [Suspect]
     Dates: start: 20120227, end: 20120302

REACTIONS (12)
  - Drug reaction with eosinophilia and systemic symptoms [None]
  - Convulsion [None]
  - Dyspnoea [None]
  - Abdominal distension [None]
  - Oedema [None]
  - Sepsis [None]
  - Bacteraemia [None]
  - International normalised ratio increased [None]
  - Ascites [None]
  - Hepatic failure [None]
  - Drug-induced liver injury [None]
  - Drug hypersensitivity [None]
